FAERS Safety Report 7034339-0 (Version None)
Quarter: 2010Q4

REPORT INFORMATION
  Report Type: 
  Country: None (occurrence: None)
  Receive Date: 20101008
  Receipt Date: 20100924
  Transmission Date: 20110411
  Serious: No
  Sender: FDA-Public Use
  Company Number: PHHY2010DE62360

PATIENT
  Age: 45 Year
  Sex: Female

DRUGS (1)
  1. EXFORGE HCT [Suspect]
     Dosage: 160/10/12.5 MG, HALF A TABLET DAILY
     Route: 048
     Dates: start: 20100101

REACTIONS (1)
  - BLEPHAROSPASM [None]
